FAERS Safety Report 5476390-8 (Version None)
Quarter: 2007Q4

REPORT INFORMATION
  Report Type: 
  Country: None (occurrence: None)
  Receive Date: 20071003
  Receipt Date: 20070925
  Transmission Date: 20080405
  Serious: Yes (Other)
  Sender: FDA-Public Use
  Company Number: US-PFIZER INC-2007079759

PATIENT
  Sex: Female
  Weight: 70.3 kg

DRUGS (5)
  1. CELEBREX [Suspect]
     Indication: ARTHRALGIA
     Route: 048
  2. NAPROSYN [Concomitant]
  3. VITAMINS [Concomitant]
  4. GLUCOSAMINE W/CHONDROITIN SULFATES [Concomitant]
  5. ALL OTHER THERAPEUTIC PRODUCTS [Concomitant]

REACTIONS (5)
  - DEPRESSION [None]
  - DIARRHOEA [None]
  - DRUG INEFFECTIVE [None]
  - KNEE ARTHROPLASTY [None]
  - PAIN [None]
